FAERS Safety Report 5374880-X (Version None)
Quarter: 2007Q2

REPORT INFORMATION
  Report Type: 
  Country: None (occurrence: None)
  Receive Date: 20070629
  Receipt Date: 20070501
  Transmission Date: 20071010
  Serious: Yes (Hospitalization, Other)
  Sender: FDA-Public Use
  Company Number: US-PURDUE-USA_2007_0027683

PATIENT
  Age: 52 Year
  Sex: Female
  Weight: 79 kg

DRUGS (5)
  1. OXYCONTIN [Suspect]
     Indication: FIBROMYALGIA
     Dosage: 40 MG, BID
     Dates: start: 20000311, end: 20060621
  2. IMITREX ^CERENEX^ [Concomitant]
     Indication: MIGRAINE
     Dosage: 50 UNK, UNK
  3. AMBIEN [Concomitant]
     Dosage: 10 UNK, UNK
  4. VALIUM [Concomitant]
     Dosage: .05 UNK, UNK
  5. PROZAC [Concomitant]
     Dosage: 20 UNK, UNK

REACTIONS (16)
  - ASTHENIA [None]
  - BEDRIDDEN [None]
  - DEHYDRATION [None]
  - DEPRESSION [None]
  - DRUG WITHDRAWAL SYNDROME [None]
  - DYSSTASIA [None]
  - FATIGUE [None]
  - HYPOKALAEMIA [None]
  - IMPAIRED SELF-CARE [None]
  - INTENTIONAL DRUG MISUSE [None]
  - MALAISE [None]
  - PAIN [None]
  - RENAL FAILURE [None]
  - SOCIAL AVOIDANT BEHAVIOUR [None]
  - SUDDEN ONSET OF SLEEP [None]
  - WEIGHT DECREASED [None]
